FAERS Safety Report 13226935 (Version 2)
Quarter: 2017Q1

REPORT INFORMATION
  Report Type: Spontaneous
  Country: CH (occurrence: NO)
  Receive Date: 20170213
  Receipt Date: 20170228
  Transmission Date: 20170428
  Serious: Yes (Other)
  Sender: FDA-Public Use
  Company Number: CH-LPDUSPRD-20170151

PATIENT
  Age: 69 Year
  Sex: Female

DRUGS (1)
  1. FERINJECT [Suspect]
     Active Substance: FERRIC CARBOXYMALTOSE
     Dosage: UNKNOWN DOSE
     Route: 065

REACTIONS (2)
  - Haemorrhage [Unknown]
  - Faeces discoloured [Unknown]
